FAERS Safety Report 11553151 (Version 1)
Quarter: 2015Q3

REPORT INFORMATION
  Report Type: Spontaneous
  Country: US (occurrence: None)
  Receive Date: 20150924
  Receipt Date: 20150924
  Transmission Date: 20151125
  Serious: Yes (Hospitalization)
  Sender: FDA-Public Use
  Company Number: None

PATIENT
  Age: 49 Year
  Sex: Male
  Weight: 98.43 kg

DRUGS (12)
  1. ASPIRIN. [Concomitant]
     Active Substance: ASPIRIN
  2. FLAGYL [Concomitant]
     Active Substance: METRONIDAZOLE\METRONIDAZOLE HYDROCHLORIDE
  3. HARVONI [Suspect]
     Active Substance: LEDIPASVIR\SOFOSBUVIR
     Indication: HEPATITIS C
     Dosage: 400/90 1X DAILY
     Route: 048
     Dates: start: 20150310, end: 20150824
  4. FERROUS SULFATE [Concomitant]
     Active Substance: FERROUS SULFATE\FERROUS SULFATE, DRIED
  5. CALCIUM-VITAMIN D3 [Concomitant]
  6. LASIX [Concomitant]
     Active Substance: FUROSEMIDE
  7. PROCRIT [Concomitant]
     Active Substance: ERYTHROPOIETIN
  8. LISINOPRIL. [Concomitant]
     Active Substance: LISINOPRIL
  9. PROGRAF [Concomitant]
     Active Substance: TACROLIMUS\TACROLIMUS ANHYDROUS
  10. ALBUTEROL. [Concomitant]
     Active Substance: ALBUTEROL
  11. CIPROFLOXACIN. [Concomitant]
     Active Substance: CIPROFLOXACIN
  12. LACTULOSE. [Concomitant]
     Active Substance: LACTULOSE

REACTIONS (11)
  - Haemoglobin decreased [None]
  - Pyrexia [None]
  - Diarrhoea [None]
  - Abdominal distension [None]
  - Dehydration [None]
  - Chills [None]
  - Culture urine positive [None]
  - Acute kidney injury [None]
  - Dyspepsia [None]
  - Back pain [None]
  - Sepsis [None]

NARRATIVE: CASE EVENT DATE: 20150824
